FAERS Safety Report 8746505 (Version 2)
Quarter: 2012Q4

REPORT INFORMATION
  Report Type: 
  Country: DE (occurrence: DE)
  Receive Date: 20120827
  Receipt Date: 20120828
  Transmission Date: 20130627
  Serious: Yes (Hospitalization)
  Sender: FDA-Public Use
  Company Number: GXKR2012DE002690

PATIENT
  Age: 88 Year
  Sex: Female
  Weight: 52 kg

DRUGS (1)
  1. ENALAPRIL 1A PHARMA [Suspect]
     Dosage: 400 mg, ONCE/SINGLE
     Route: 048

REACTIONS (2)
  - Suicide attempt [Not Recovered/Not Resolved]
  - Incorrect dose administered [None]
